FAERS Safety Report 19419934 (Version 2)
Quarter: 2021Q3

REPORT INFORMATION
  Report Type: Spontaneous
  Country: CN (occurrence: CN)
  Receive Date: 20210615
  Receipt Date: 20210701
  Transmission Date: 20211014
  Serious: Yes (Life-Threatening, Other)
  Sender: FDA-Public Use
  Company Number: CN-PFIZER INC-2021642681

PATIENT
  Age: 30 Year
  Sex: Female

DRUGS (11)
  1. AZITHROMYCIN ANHYDROUS. [Suspect]
     Active Substance: AZITHROMYCIN ANHYDROUS
     Indication: PYREXIA
     Dosage: UNK
  2. LINEZOLID. [Suspect]
     Active Substance: LINEZOLID
     Indication: PNEUMONIA
     Dosage: UNK
     Route: 041
  3. CILASTATIN SODIUM/IMIPENEM [Suspect]
     Active Substance: CILASTATIN SODIUM\IMIPENEM
     Indication: PYREXIA
     Dosage: UNK
  4. VORICONAZOLE. [Suspect]
     Active Substance: VORICONAZOLE
     Indication: PNEUMONIA
  5. CILASTATIN SODIUM/IMIPENEM [Suspect]
     Active Substance: CILASTATIN SODIUM\IMIPENEM
     Indication: PNEUMONIA
  6. NORVANCOMYCIN [Suspect]
     Active Substance: NORVANCOMYCIN
     Indication: PYREXIA
     Dosage: UNK
  7. MOXIFLOXACIN HYDROCHLORIDE. [Suspect]
     Active Substance: MOXIFLOXACIN HYDROCHLORIDE
     Indication: PYREXIA
     Dosage: UNK
  8. NORVANCOMYCIN [Suspect]
     Active Substance: NORVANCOMYCIN
     Indication: PNEUMONIA
  9. MOXIFLOXACIN HYDROCHLORIDE. [Suspect]
     Active Substance: MOXIFLOXACIN HYDROCHLORIDE
     Indication: PNEUMONIA
  10. AZITHROMYCIN ANHYDROUS. [Suspect]
     Active Substance: AZITHROMYCIN ANHYDROUS
     Indication: PNEUMONIA
  11. VORICONAZOLE. [Suspect]
     Active Substance: VORICONAZOLE
     Indication: PYREXIA
     Dosage: UNK

REACTIONS (3)
  - Ventricular extrasystoles [Recovered/Resolved]
  - Torsade de pointes [Recovered/Resolved]
  - Long QT syndrome [Recovered/Resolved]
